FAERS Safety Report 14418052 (Version 1)
Quarter: 2018Q1

REPORT INFORMATION
  Report Type: Spontaneous
  Country: US (occurrence: US)
  Receive Date: 20180119
  Receipt Date: 20180119
  Transmission Date: 20180509
  Serious: Yes (Other)
  Sender: FDA-Public Use
  Company Number: None

PATIENT
  Age: 63 Year
  Sex: Female
  Weight: 65.25 kg

DRUGS (3)
  1. CYMBALTA [Suspect]
     Active Substance: DULOXETINE HYDROCHLORIDE
     Indication: ARTHRALGIA
     Dosage: ?          QUANTITY:1 CAPSULE(S);?
     Route: 048
     Dates: start: 20170101, end: 20171110
  2. IBUPROFEN. [Concomitant]
     Active Substance: IBUPROFEN
  3. GABAPENTIN. [Concomitant]
     Active Substance: GABAPENTIN

REACTIONS (9)
  - Gait disturbance [None]
  - Paraesthesia [None]
  - Suicidal ideation [None]
  - Hypoacusis [None]
  - Withdrawal syndrome [None]
  - Balance disorder [None]
  - Feeling abnormal [None]
  - Eating disorder [None]
  - Dyspnoea [None]

NARRATIVE: CASE EVENT DATE: 20180119
